FAERS Safety Report 4729511-6 (Version None)
Quarter: 2005Q3

REPORT INFORMATION
  Report Type: 
  Country: None (occurrence: None)
  Receive Date: 20050801
  Receipt Date: 20050505
  Transmission Date: 20060218
  Serious: Yes (Hospitalization)
  Sender: FDA-Public Use
  Company Number: US-MERCK-0505USA00746

PATIENT
  Age: 59 Year
  Sex: Female
  Weight: 85 kg

DRUGS (10)
  1. EFFEXOR [Concomitant]
     Route: 065
  2. CAPOTEN [Concomitant]
     Route: 048
  3. ZOCOR [Concomitant]
     Route: 048
     Dates: start: 19900101
  4. VICODIN [Concomitant]
     Indication: PAIN
     Route: 065
     Dates: start: 20000101
  5. GLUCOPHAGE [Concomitant]
     Route: 065
  6. GLUCOPHAGE [Concomitant]
     Route: 065
  7. GLYBURIDE [Concomitant]
     Route: 065
  8. INSULIN HUMAN, ISOPHANE [Concomitant]
     Route: 058
  9. INSULIN [Concomitant]
     Route: 065
  10. VIOXX [Suspect]
     Indication: ARTHRITIS
     Route: 048
     Dates: start: 20000101, end: 20020301

REACTIONS (5)
  - CEREBROVASCULAR ACCIDENT [None]
  - DEPRESSION [None]
  - HEPATIC STEATOSIS [None]
  - IRRITABLE BOWEL SYNDROME [None]
  - PANIC DISORDER [None]
